FAERS Safety Report 14410455 (Version 1)
Quarter: 2018Q1

REPORT INFORMATION
  Report Type: Spontaneous
  Country: US (occurrence: US)
  Receive Date: 20180116
  Receipt Date: 20180116
  Transmission Date: 20180509
  Serious: Yes (Hospitalization)
  Sender: FDA-Public Use
  Company Number: None

PATIENT
  Age: 56 Year
  Sex: Female
  Weight: 81.8 kg

DRUGS (2)
  1. VANCOMYCIN 1GM [Suspect]
     Active Substance: VANCOMYCIN
     Route: 042
     Dates: start: 20171215
  2. CEFEPIME [Suspect]
     Active Substance: CEFEPIME HYDROCHLORIDE
     Indication: CELLULITIS
     Route: 042
     Dates: start: 20171215, end: 20180108

REACTIONS (3)
  - Drug eruption [None]
  - Rash [None]
  - Therapy change [None]

NARRATIVE: CASE EVENT DATE: 20180112
